FAERS Safety Report 15395300 (Version 3)
Quarter: 2018Q4

REPORT INFORMATION
  Report Type: Spontaneous
  Country: US (occurrence: US)
  Receive Date: 20180918
  Receipt Date: 20181120
  Transmission Date: 20190204
  Serious: No
  Sender: FDA-Public Use
  Company Number: US-PFIZER INC-2018374148

PATIENT
  Age: 44 Year
  Sex: Female
  Weight: 113 kg

DRUGS (3)
  1. CHANTIX [Suspect]
     Active Substance: VARENICLINE TARTRATE
     Dosage: 0.5 MG, 2X/DAY
     Dates: start: 20180914, end: 20180917
  2. CHANTIX [Suspect]
     Active Substance: VARENICLINE TARTRATE
     Indication: SMOKING CESSATION THERAPY
     Dosage: 0.5 MG, DAILY (ONE HALF TAB IN THE MORNING FOR 7 DAYS)
     Dates: start: 20180711, end: 20180717
  3. CEFEXIN [CEFALEXIN] [Concomitant]
     Dosage: UNK

REACTIONS (6)
  - Hallucination, auditory [Unknown]
  - Drug ineffective [Not Recovered/Not Resolved]
  - Intentional product misuse [Unknown]
  - Thinking abnormal [Recovered/Resolved]
  - Abnormal dreams [Unknown]
  - Mood swings [Unknown]

NARRATIVE: CASE EVENT DATE: 20180711
